FAERS Safety Report 6896401-2 (Version None)
Quarter: 2010Q3

REPORT INFORMATION
  Report Type: 
  Country: None (occurrence: None)
  Receive Date: 20100802
  Receipt Date: 20100726
  Transmission Date: 20110219
  Serious: Yes (Other)
  Sender: FDA-Public Use
  Company Number: JP-SANOFI-AVENTIS-2010SA044129

PATIENT
  Age: 60 Year
  Sex: Female

DRUGS (3)
  1. ELPLAT [Suspect]
     Indication: LARGE INTESTINE CARCINOMA
     Route: 042
  2. ELPLAT [Suspect]
     Route: 042
  3. XELODA [Suspect]
     Indication: LARGE INTESTINE CARCINOMA
     Route: 048

REACTIONS (2)
  - ADVERSE REACTION [None]
  - CEREBRAL INFARCTION [None]
